FAERS Safety Report 6358250-3 (Version None)
Quarter: 2009Q3

REPORT INFORMATION
  Report Type: 
  Country: None (occurrence: None)
  Receive Date: 20090916
  Receipt Date: 20090904
  Transmission Date: 20100115
  Serious: Yes (Other)
  Sender: FDA-Public Use
  Company Number: US-PFIZER INC-2004094517

PATIENT
  Sex: Female
  Weight: 50.8 kg

DRUGS (1)
  1. SUNITINIB MALATE [Suspect]
     Indication: RENAL CELL CARCINOMA
     Dosage: 50 MG, DAILY
     Route: 048
     Dates: start: 20040723, end: 20041022

REACTIONS (2)
  - EJECTION FRACTION DECREASED [None]
  - MYOCARDIAL ISCHAEMIA [None]
